FAERS Safety Report 21800393 (Version 1)
Quarter: 2022Q4

REPORT INFORMATION
  Report Type: Spontaneous
  Country: US (occurrence: None)
  Receive Date: 20221229
  Receipt Date: 20221229
  Transmission Date: 20230113
  Serious: Yes (Other)
  Sender: FDA-Public Use
  Company Number: None

PATIENT
  Age: 27 Year
  Sex: Female

DRUGS (2)
  1. UREA 20 [Suspect]
     Active Substance: UREA
     Indication: Dry skin
     Dosage: OTHER QUANTITY : 2 TEASPOON(S);?FREQUENCY : TWICE A DAY;?
     Route: 061
     Dates: start: 20221228, end: 20221228
  2. UREA 20 [Suspect]
     Active Substance: UREA
     Indication: Skin fissures

REACTIONS (4)
  - Application site pain [None]
  - Application site pain [None]
  - Application site swelling [None]
  - Skin tightness [None]

NARRATIVE: CASE EVENT DATE: 20221228
